FAERS Safety Report 5911883-8 (Version None)
Quarter: 2008Q4

REPORT INFORMATION
  Report Type: 
  Country: None (occurrence: None)
  Receive Date: 20081008
  Receipt Date: 20081006
  Transmission Date: 20090506
  Serious: Yes (Hospitalization, Other)
  Sender: FDA-Public Use
  Company Number: JP-BRISTOL-MYERS SQUIBB COMPANY-14359228

PATIENT
  Age: 15 Year
  Sex: Female

DRUGS (8)
  1. BLEOMYCIN SULFATE [Suspect]
     Indication: YOLK SAC TUMOUR SITE UNSPECIFIED
  2. CYCLOPHOSPHAMIDE [Suspect]
  3. DOXORUBICIN HCL [Suspect]
  4. ETOPOSIDE [Suspect]
  5. CISPLATIN [Suspect]
  6. VINBLASTINE SULFATE [Suspect]
  7. DACTINOMYCIN [Suspect]
  8. RADIATION THERAPY [Suspect]

REACTIONS (4)
  - GROWTH RETARDATION [None]
  - PNEUMONITIS CHEMICAL [None]
  - PNEUMOTHORAX [None]
  - PULMONARY FIBROSIS [None]
